FAERS Safety Report 5418021-9 (Version None)
Quarter: 2007Q3

REPORT INFORMATION
  Report Type: 
  Country: None (occurrence: None)
  Receive Date: 20070817
  Receipt Date: 20061215
  Transmission Date: 20080115
  Serious: No
  Sender: FDA-Public Use
  Company Number: A0629671A

PATIENT
  Sex: Male

DRUGS (1)
  1. BEXXAR [Suspect]
     Route: 042
     Dates: start: 20061110

REACTIONS (1)
  - COUGH [None]
